FAERS Safety Report 4377786-8 (Version None)
Quarter: 2004Q2

REPORT INFORMATION
  Report Type: 
  Country: None (occurrence: None)
  Receive Date: 20040608
  Receipt Date: 20040528
  Transmission Date: 20050107
  Serious: Yes (Hospitalization)
  Sender: FDA-Public Use
  Company Number: 2004SE02805

PATIENT
  Age: 74 Year
  Sex: Male

DRUGS (5)
  1. OMEPRAZOLE [Suspect]
     Dates: start: 20030929, end: 20031029
  2. PEFLOXACINE [Suspect]
  3. DICLOFENAC SODIUM [Suspect]
  4. METRONIDAZOLE [Suspect]
  5. FUROSEMIDE [Suspect]

REACTIONS (1)
  - SKIN DESQUAMATION [None]
